FAERS Safety Report 16512569 (Version 1)
Quarter: 2019Q3

REPORT INFORMATION
  Report Type: Report from Study
  Country: ZA (occurrence: ZA)
  Receive Date: 20190702
  Receipt Date: 20190702
  Transmission Date: 20191004
  Serious: Yes (Other)
  Sender: FDA-Public Use
  Company Number: ZA-MYLANLABS-2019M1061365

PATIENT
  Sex: Female

DRUGS (1)
  1. ATROIZA [Suspect]
     Active Substance: EFAVIRENZ\EMTRICITABINE\TENOFOVIR DISOPROXIL FUMARATE
     Indication: HIV INFECTION
     Dosage: 1 DOSE AT BEDTIME, HS
     Route: 048
     Dates: start: 201904

REACTIONS (2)
  - Liver function test increased [Not Recovered/Not Resolved]
  - Blood cholesterol [Not Recovered/Not Resolved]

NARRATIVE: CASE EVENT DATE: 2019
